FAERS Safety Report 9421005 (Version 1)
Quarter: 2013Q3

REPORT INFORMATION
  Report Type: Spontaneous
  Country: FR (occurrence: FR)
  Receive Date: 20130725
  Receipt Date: 20130725
  Transmission Date: 20140515
  Serious: Yes (Hospitalization)
  Sender: FDA-Public Use
  Company Number: FR-ASTRAZENECA-2013SE54253

PATIENT
  Age: 83 Year
  Sex: Male

DRUGS (8)
  1. TENORMINE [Suspect]
     Route: 048
  2. CORTANCYL [Concomitant]
  3. MOPRAL [Concomitant]
  4. CACIT VITAMIN D3 [Concomitant]
  5. KARDEGIC [Concomitant]
  6. ALLOPURINOL [Concomitant]
  7. NOOTROPYL [Concomitant]
     Dosage: 800 MG
  8. CERVOXAN [Concomitant]

REACTIONS (1)
  - Retroperitoneal fibrosis [Unknown]
